FAERS Safety Report 7433567-X (Version None)
Quarter: 2011Q2

REPORT INFORMATION
  Report Type: 
  Country: None (occurrence: None)
  Receive Date: 20110422
  Receipt Date: 20110413
  Transmission Date: 20111010
  Serious: Yes (Other)
  Sender: FDA-Public Use
  Company Number: DE-ELI_LILLY_AND_COMPANY-DE201104003598

PATIENT
  Age: 76 Year
  Sex: Male

DRUGS (3)
  1. CARDIAC THERAPY [Concomitant]
  2. FORTEO [Suspect]
     Indication: OSTEOPOROSIS
     Dosage: UNK, QD
     Route: 058
     Dates: start: 20110118
  3. FORTEO [Suspect]
     Dosage: UNK, QD
     Route: 058
     Dates: end: 20110301

REACTIONS (2)
  - RESPIRATORY DISTRESS [None]
  - PULMONARY OEDEMA [None]
